FAERS Safety Report 6744309-5 (Version None)
Quarter: 2010Q2

REPORT INFORMATION
  Report Type: 
  Country: None (occurrence: None)
  Receive Date: 20100527
  Receipt Date: 20100521
  Transmission Date: 20101027
  Serious: Yes (Other)
  Sender: FDA-Public Use
  Company Number: US-MERCK-1005USA03178

PATIENT
  Age: 48 Year
  Sex: Female

DRUGS (1)
  1. SINGULAIR [Suspect]
     Indication: ASTHMA
     Route: 048
     Dates: start: 20070101, end: 20091201

REACTIONS (8)
  - ANGER [None]
  - ANXIETY [None]
  - DEPRESSION [None]
  - PAIN IN EXTREMITY [None]
  - PARAESTHESIA [None]
  - RASH [None]
  - SKIN BURNING SENSATION [None]
  - SUICIDAL IDEATION [None]
